FAERS Safety Report 13860580 (Version 1)
Quarter: 2017Q3

REPORT INFORMATION
  Report Type: Report from Study
  Country: US (occurrence: US)
  Receive Date: 20170811
  Receipt Date: 20170811
  Transmission Date: 20171127
  Serious: Yes (Hospitalization)
  Sender: FDA-Public Use
  Company Number: US-EISAI MEDICAL RESEARCH-EC-2017-027414

PATIENT
  Sex: Male
  Weight: 74.8 kg

DRUGS (8)
  1. LENVIMA [Suspect]
     Active Substance: LENVATINIB
     Indication: RENAL CANCER
     Route: 048
     Dates: start: 20170424, end: 2017
  2. AFINITOR [Concomitant]
     Active Substance: EVEROLIMUS
  3. SYNTHROID [Concomitant]
     Active Substance: LEVOTHYROXINE SODIUM
  4. LIPITOR [Concomitant]
     Active Substance: ATORVASTATIN CALCIUM
  5. LISINOPRIL. [Concomitant]
     Active Substance: LISINOPRIL
  6. PRILOSEC OTC [Concomitant]
     Active Substance: OMEPRAZOLE MAGNESIUM
  7. METOPROLOL TARTRATE. [Concomitant]
     Active Substance: METOPROLOL TARTRATE
  8. FLOMAX [Concomitant]
     Active Substance: TAMSULOSIN HYDROCHLORIDE

REACTIONS (3)
  - Decreased appetite [Unknown]
  - Gingival pain [Unknown]
  - Cerebrovascular accident [Unknown]

NARRATIVE: CASE EVENT DATE: 2017
